FAERS Safety Report 8394387-5 (Version None)
Quarter: 2012Q2

REPORT INFORMATION
  Report Type: 
  Country: None (occurrence: None)
  Receive Date: 20120525
  Receipt Date: 20120525
  Transmission Date: 20120825
  Serious: Yes (Hospitalization)
  Sender: FDA-Public Use
  Company Number: None

PATIENT
  Sex: Female

DRUGS (2)
  1. NTG RAPID WRINKLE REPAIR SERUM [Suspect]
     Indication: SKIN WRINKLING
     Dosage: TOPICAL
     Route: 061
  2. NTG RAPID WRINKLE REPAIR NIGHT MOISTURIZER [Suspect]
     Indication: SKIN WRINKLING
     Dosage: TOPICAL
     Route: 061

REACTIONS (1)
  - MIGRAINE [None]
